FAERS Safety Report 6591498-1 (Version None)
Quarter: 2010Q1

REPORT INFORMATION
  Report Type: 
  Country: None (occurrence: None)
  Receive Date: 20100219
  Receipt Date: 20100209
  Transmission Date: 20100710
  Serious: Yes (Other)
  Sender: FDA-Public Use
  Company Number: US-ABBOTT-10P-163-0625451-00

PATIENT
  Sex: Female
  Weight: 63.56 kg

DRUGS (6)
  1. HUMIRA [Suspect]
     Indication: UVEITIS
     Dates: start: 20091201, end: 20091230
  2. METHOTREXATE [Concomitant]
     Indication: UVEITIS
  3. FOLIC ACID [Concomitant]
     Indication: VITAMIN SUPPLEMENTATION
     Dosage: UNKNOWN
  4. BIRTH CONTROL [Concomitant]
     Indication: CONTRACEPTION
     Dosage: DAILY
  5. PRED FORTE [Concomitant]
     Indication: UVEITIS
     Dosage: IN BOTH EYES
     Route: 047
  6. UNKNOWN EYE DROP [Concomitant]
     Indication: UVEITIS
     Dosage: ON AND OFF DAILY
     Route: 047

REACTIONS (5)
  - CATARACT [None]
  - GLAUCOMA [None]
  - INTRAOCULAR PRESSURE INCREASED [None]
  - RETINAL SCAR [None]
  - UVEITIS [None]
